FAERS Safety Report 15111525 (Version 4)
Quarter: 2019Q2

REPORT INFORMATION
  Report Type: Report from Study
  Country: GB (occurrence: GB)
  Receive Date: 20180705
  Receipt Date: 20190528
  Transmission Date: 20190711
  Serious: Yes (Hospitalization, Other)
  Sender: FDA-Public Use
  Company Number: PHHY2018GB000743

PATIENT
  Age: 61 Year
  Sex: Male

DRUGS (1)
  1. GILENYA [Suspect]
     Active Substance: FINGOLIMOD HYDROCHLORIDE
     Indication: MULTIPLE SCLEROSIS
     Dosage: 0.5 MG, QD
     Route: 048
     Dates: start: 20170131

REACTIONS (8)
  - Malignant melanoma [Recovered/Resolved]
  - Pneumonia [Unknown]
  - Skin cancer [Recovered/Resolved]
  - Pulmonary embolism [Recovered/Resolved]
  - Productive cough [Unknown]
  - Asthenia [Unknown]
  - Influenza [Recovered/Resolved]
  - Dyspnoea [Unknown]

NARRATIVE: CASE EVENT DATE: 201710
